FAERS Safety Report 18556539 (Version 1)
Quarter: 2020Q4

REPORT INFORMATION
  Report Type: Report from Study
  Country: None (occurrence: CA)
  Receive Date: 20201128
  Receipt Date: 20201128
  Transmission Date: 20210114
  Serious: Yes (Other)
  Sender: FDA-Public Use
  Company Number: CA-ABBVIE-20K-028-3667220-00

PATIENT
  Age: 77 Year
  Sex: Male

DRUGS (1)
  1. LUPRON DEPOT [Suspect]
     Active Substance: LEUPROLIDE ACETATE
     Indication: PROSTATE CANCER
     Route: 030

REACTIONS (2)
  - Pain [Recovering/Resolving]
  - Spinal fracture [Recovering/Resolving]

NARRATIVE: CASE EVENT DATE: 202011
